FAERS Safety Report 7333341-9 (Version None)
Quarter: 2011Q1

REPORT INFORMATION
  Report Type: 
  Country: None (occurrence: None)
  Receive Date: 20110304
  Receipt Date: 20110228
  Transmission Date: 20110831
  Serious: Yes (Other)
  Sender: FDA-Public Use
  Company Number: US-PFIZER INC-2011043295

PATIENT
  Sex: Male

DRUGS (1)
  1. TOVIAZ [Suspect]
     Dosage: UNK

REACTIONS (8)
  - HEART RATE INCREASED [None]
  - TREMOR [None]
  - PULSE PRESSURE DECREASED [None]
  - HEART RATE IRREGULAR [None]
  - CHILLS [None]
  - MUSCULAR WEAKNESS [None]
  - TENSION [None]
  - HYPERHIDROSIS [None]
